FAERS Safety Report 9266144 (Version 3)
Quarter: 2013Q4

REPORT INFORMATION
  Report Type: Report from Study
  Country: CA (occurrence: CA)
  Receive Date: 20130502
  Receipt Date: 20131009
  Transmission Date: 20140711
  Serious: Yes (Death, Life-Threatening, Hospitalization)
  Sender: FDA-Public Use
  Company Number: CA-ROCHE-1210111

PATIENT
  Sex: Male

DRUGS (6)
  1. ACTEMRA [Suspect]
     Indication: RHEUMATOID ARTHRITIS
     Route: 042
     Dates: start: 20120820
  2. ACTEMRA [Suspect]
     Route: 042
     Dates: start: 20130201
  3. PREDNISONE [Concomitant]
  4. FLOMAX (CANADA) [Concomitant]
  5. MARIJUANA [Concomitant]
  6. NAPROXEN [Concomitant]

REACTIONS (5)
  - Aortic aneurysm [Unknown]
  - Pneumonia [Unknown]
  - Dyspnoea [Not Recovered/Not Resolved]
  - Nephrolithiasis [Unknown]
  - Death [Fatal]
